FAERS Safety Report 15739849 (Version 1)
Quarter: 2018Q4

REPORT INFORMATION
  Report Type: Report from Study
  Country: EG (occurrence: EG)
  Receive Date: 20181219
  Receipt Date: 20181219
  Transmission Date: 20190205
  Serious: Yes (Hospitalization)
  Sender: FDA-Public Use
  Company Number: EG-SA-2018SA149061

PATIENT
  Age: 10 Month
  Sex: Male

DRUGS (2)
  1. INSULIN GLARGINE [Suspect]
     Active Substance: INSULIN GLARGINE
     Indication: TYPE 1 DIABETES MELLITUS
     Dosage: 6 IU, QD
     Route: 058
     Dates: start: 20180515
  2. ACTRAPID [Suspect]
     Active Substance: INSULIN HUMAN
     Indication: TYPE 1 DIABETES MELLITUS

REACTIONS (1)
  - Coma [Unknown]

NARRATIVE: CASE EVENT DATE: 20180602
